FAERS Safety Report 17534467 (Version 3)
Quarter: 2020Q3

REPORT INFORMATION
  Report Type: Spontaneous
  Country: US (occurrence: US)
  Receive Date: 20200312
  Receipt Date: 20200915
  Transmission Date: 20201102
  Serious: Yes (Other)
  Sender: FDA-Public Use
  Company Number: US-TEVA-2020-US-1199246

PATIENT
  Age: 39 Year
  Sex: Male

DRUGS (1)
  1. DIAZEPAM TEVA [Suspect]
     Active Substance: DIAZEPAM
     Indication: MUSCLE SPASTICITY
     Dosage: FOR 4 DAYS
     Route: 065
     Dates: start: 201810, end: 201812

REACTIONS (4)
  - Constipation [Unknown]
  - Drug ineffective [Unknown]
  - Urinary retention [Unknown]
  - Tension [Unknown]

NARRATIVE: CASE EVENT DATE: 2018
